FAERS Safety Report 6843587-1 (Version None)
Quarter: 2010Q3

REPORT INFORMATION
  Report Type: 
  Country: None (occurrence: None)
  Receive Date: 20100712
  Receipt Date: 20100701
  Transmission Date: 20110219
  Serious: Yes (Other)
  Sender: FDA-Public Use
  Company Number: 2010US002651

PATIENT
  Age: 44 Year
  Sex: Male
  Weight: 70 kg

DRUGS (5)
  1. PROGRAF [Suspect]
     Indication: RENAL TRANSPLANT
     Dates: start: 20080801
  2. THYMOGLOBULIN [Suspect]
     Indication: RENAL TRANSPLANT
     Dates: start: 20080801
  3. METHYLPREDNISOLONE [Suspect]
     Indication: RENAL TRANSPLANT
     Dates: start: 20080801
  4. RITUXIMAB (RITUXIMAB) [Suspect]
     Indication: RENAL TRANSPLANT
     Dates: start: 20080801
  5. MYCOPHENOLATE MOFETIL [Concomitant]
     Indication: RENAL TRANSPLANT
     Dates: start: 20080801

REACTIONS (14)
  - ABDOMINAL WALL ABSCESS [None]
  - ACINETOBACTER INFECTION [None]
  - CEREBRAL HAEMORRHAGE [None]
  - COMPLICATIONS OF TRANSPLANTED KIDNEY [None]
  - HAEMATOCRIT DECREASED [None]
  - HAEMOGLOBIN DECREASED [None]
  - HYPERTENSION [None]
  - ISCHAEMIC STROKE [None]
  - PLATELET COUNT DECREASED [None]
  - PNEUMONIA HAEMOPHILUS [None]
  - POSTOPERATIVE WOUND INFECTION [None]
  - REVERSIBLE POSTERIOR LEUKOENCEPHALOPATHY SYNDROME [None]
  - TRANSPLANT REJECTION [None]
  - URINARY FISTULA [None]
